FAERS Safety Report 11095435 (Version 1)
Quarter: 2015Q2

REPORT INFORMATION
  Report Type: Spontaneous
  Country: GB (occurrence: GB)
  Receive Date: 20150506
  Receipt Date: 20150506
  Transmission Date: 20150821
  Serious: Yes (Death, Other)
  Sender: FDA-Public Use
  Company Number: GB-PFIZER INC-2005127851

PATIENT
  Age: 21 Year
  Sex: Female

DRUGS (5)
  1. DARVON [Suspect]
     Active Substance: PROPOXYPHENE HYDROCHLORIDE
  2. ZOLPIDEM TARTRATE. [Suspect]
     Active Substance: ZOLPIDEM TARTRATE
  3. MIRTAZAPINE. [Suspect]
     Active Substance: MIRTAZAPINE
  4. PARACETAMOL [Suspect]
     Active Substance: ACETAMINOPHEN
  5. EFEXOR XL [Suspect]
     Active Substance: VENLAFAXINE HYDROCHLORIDE

REACTIONS (2)
  - Overdose [Fatal]
  - Sudden death [Fatal]
